FAERS Safety Report 17561870 (Version 1)
Quarter: 2020Q1

REPORT INFORMATION
  Report Type: Spontaneous
  Country: CA (occurrence: CA)
  Receive Date: 20200319
  Receipt Date: 20200319
  Transmission Date: 20200409
  Serious: Yes (Other)
  Sender: FDA-Public Use
  Company Number: CA-TEVA-2020-CA-1206272

PATIENT
  Age: 38 Year
  Sex: Female

DRUGS (14)
  1. FOLIC ACID. [Concomitant]
     Active Substance: FOLIC ACID
     Dosage: 1 MILLIGRAM DAILY;
  2. WELLBUTRIN [Concomitant]
     Active Substance: BUPROPION HYDROCHLORIDE
     Dosage: 300 MILLIGRAM DAILY;
  3. HYDROXYCHLOROQUINE SULFATE. [Suspect]
     Active Substance: HYDROXYCHLOROQUINE SULFATE
     Indication: RHEUMATOID ARTHRITIS
     Dosage: 400 MILLIGRAM DAILY;
     Route: 048
  4. APO-NAPROXEN [Concomitant]
     Active Substance: NAPROXEN
     Dosage: 1000 MILLIGRAM DAILY;
  5. PANTOPRAZOLE MAGNESIUM [Concomitant]
     Active Substance: PANTOPRAZOLE MAGNESIUM
     Dosage: 40 MILLIGRAM DAILY;
  6. PANTOPRAZOLE MAGNESIUM [Concomitant]
     Active Substance: PANTOPRAZOLE MAGNESIUM
     Dosage: 1 DOSAGE FORMS DAILY;
  7. DESOXIMETASONE. [Concomitant]
     Active Substance: DESOXIMETASONE
  8. METHOTREXATE. [Suspect]
     Active Substance: METHOTREXATE
     Indication: RHEUMATOID ARTHRITIS
     Route: 065
  9. ERGOCALCIFEROL. [Concomitant]
     Active Substance: ERGOCALCIFEROL
     Route: 048
  10. LEUCOVORIN CALCIUM. [Concomitant]
     Active Substance: LEUCOVORIN CALCIUM
  11. ARAVA [Suspect]
     Active Substance: LEFLUNOMIDE
     Indication: RHEUMATOID ARTHRITIS
     Dosage: 10 MILLIGRAM DAILY;
     Route: 048
  12. METHOTREXATE. [Suspect]
     Active Substance: METHOTREXATE
     Indication: RHEUMATOID ARTHRITIS
     Route: 048
  13. APO-PREDNISONE [Concomitant]
     Active Substance: PREDNISONE
  14. VITAMIN C [Concomitant]
     Active Substance: ASCORBIC ACID
     Route: 048

REACTIONS (13)
  - Musculoskeletal stiffness [Unknown]
  - Arthralgia [Unknown]
  - Dry eye [Unknown]
  - Gastrointestinal disorder [Unknown]
  - Upper respiratory tract infection [Unknown]
  - Condition aggravated [Unknown]
  - Fatigue [Unknown]
  - Feeling abnormal [Unknown]
  - Therapeutic product effect incomplete [Unknown]
  - Headache [Unknown]
  - Tremor [Unknown]
  - Anxiety [Unknown]
  - Thirst [Unknown]
